FAERS Safety Report 10629866 (Version 1)
Quarter: 2014Q4

REPORT INFORMATION
  Report Type: Spontaneous
  Country: US (occurrence: US)
  Receive Date: 20141205
  Receipt Date: 20141205
  Transmission Date: 20150529
  Serious: No
  Sender: FDA-Public Use
  Company Number: US-BRISTOL-MYERS SQUIBB COMPANY-21412440

PATIENT
  Age: 69 Year
  Sex: Male
  Weight: 81.63 kg

DRUGS (2)
  1. BYETTA [Suspect]
     Active Substance: EXENATIDE
     Indication: TYPE 2 DIABETES MELLITUS
     Dosage: ONGOING
  2. METFORMIN HCL [Concomitant]
     Active Substance: METFORMIN HYDROCHLORIDE

REACTIONS (8)
  - Blood glucose decreased [Unknown]
  - Incorrect dose administered [Unknown]
  - Asthenia [Unknown]
  - Hyperhidrosis [Unknown]
  - Agitation [Unknown]
  - Malaise [Unknown]
  - Hypotonia [Unknown]
  - Tremor [Unknown]

NARRATIVE: CASE EVENT DATE: 201409
